FAERS Safety Report 6986546-0 (Version None)
Quarter: 2010Q3

REPORT INFORMATION
  Report Type: 
  Country: None (occurrence: None)
  Receive Date: 20100915
  Receipt Date: 20090709
  Transmission Date: 20110219
  Serious: No
  Sender: FDA-Public Use
  Company Number: US-WYE-H10086309

PATIENT
  Age: 30 Year
  Sex: Female
  Weight: 63.56 kg

DRUGS (1)
  1. PRISTIQ [Suspect]
     Indication: POSTPARTUM DEPRESSION
     Route: 048
     Dates: start: 20090609, end: 20090612

REACTIONS (1)
  - VISUAL IMPAIRMENT [None]
